FAERS Safety Report 15593133 (Version 2)
Quarter: 2018Q4

REPORT INFORMATION
  Report Type: Report from Study
  Country: US (occurrence: US)
  Receive Date: 20181107
  Receipt Date: 20181112
  Transmission Date: 20190205
  Serious: No
  Sender: FDA-Public Use
  Company Number: PHEH2018US047033

PATIENT
  Sex: Female

DRUGS (1)
  1. GILENYA [Suspect]
     Active Substance: FINGOLIMOD HYDROCHLORIDE
     Indication: MULTIPLE SCLEROSIS
     Dosage: 0.5 MG, QD
     Route: 048
     Dates: start: 201810

REACTIONS (5)
  - Red cell distribution width decreased [Unknown]
  - Lymphocyte count decreased [Unknown]
  - Dizziness [Unknown]
  - Dizziness [Recovered/Resolved]
  - Influenza like illness [Recovered/Resolved]
